FAERS Safety Report 23987657 (Version 4)
Quarter: 2024Q3

REPORT INFORMATION
  Report Type: Spontaneous
  Country: JP (occurrence: JP)
  Receive Date: 20240619
  Receipt Date: 20240911
  Transmission Date: 20241016
  Serious: Yes (Life-Threatening, Disabling, Other)
  Sender: ELI LILLY AND CO
  Company Number: JP-ELI_LILLY_AND_COMPANY-JP202406007609

PATIENT
  Age: 15 Year
  Sex: Female
  Weight: 52 kg

DRUGS (3)
  1. OMVOH [Suspect]
     Active Substance: MIRIKIZUMAB-MRKZ
     Indication: Colitis ulcerative
     Dosage: 300 MG, SINGLE
     Route: 041
     Dates: start: 20240610, end: 20240610
  2. PREDNISOLONE [Suspect]
     Active Substance: PREDNISOLONE
     Indication: Colitis ulcerative
     Dosage: 5 MG, BID
     Route: 048
     Dates: start: 20240513, end: 20240618
  3. DALTEPARIN SODIUM [Concomitant]
     Active Substance: DALTEPARIN SODIUM
     Dosage: 3800 DOSAGE FORM, DAILY
     Dates: start: 20240527, end: 20240611

REACTIONS (5)
  - Portal vein thrombosis [Recovered/Resolved]
  - Hepatic vein thrombosis [Recovered/Resolved]
  - Cerebral venous sinus thrombosis [Recovered/Resolved with Sequelae]
  - Cerebral infarction [Recovered/Resolved with Sequelae]
  - Monoplegia [Unknown]

NARRATIVE: CASE EVENT DATE: 20240611
